FAERS Safety Report 6557704-4 (Version None)
Quarter: 2010Q1

REPORT INFORMATION
  Report Type: 
  Country: None (occurrence: None)
  Receive Date: 20100126
  Receipt Date: 20091029
  Transmission Date: 20100710
  Serious: Yes (Hospitalization)
  Sender: FDA-Public Use
  Company Number: LMI-2009-00303

PATIENT
  Age: 39 Year
  Sex: Female
  Weight: 75.2971 kg

DRUGS (2)
  1. DEFINITY [Suspect]
     Indication: CARDIAC STRESS TEST
     Dosage: 1 VIAL DILUTED IN 50 ML X2,INTRAVENOUS
     Route: 042
     Dates: start: 20090521, end: 20090521
  2. DOBUTAMINE (DOBUTAMINE) [Concomitant]

REACTIONS (1)
  - HYPERSENSITIVITY [None]
